FAERS Safety Report 21156984 (Version 1)
Quarter: 2022Q3

REPORT INFORMATION
  Report Type: Spontaneous
  Country: US (occurrence: None)
  Receive Date: 20220729
  Receipt Date: 20220729
  Transmission Date: 20221027
  Serious: Yes (Other)
  Sender: FDA-Public Use
  Company Number: None

PATIENT
  Age: 58 Year
  Sex: Female
  Weight: 47.3 kg

DRUGS (1)
  1. VENOFER [Suspect]
     Active Substance: IRON SUCROSE
     Indication: Product used for unknown indication

REACTIONS (6)
  - Urticaria [None]
  - Nausea [None]
  - Dyspnoea [None]
  - Blood pressure increased [None]
  - Peripheral swelling [None]
  - Chest pain [None]

NARRATIVE: CASE EVENT DATE: 20220729
